FAERS Safety Report 8186444-3 (Version None)
Quarter: 2012Q1

REPORT INFORMATION
  Report Type: 
  Country: None (occurrence: None)
  Receive Date: 20120306
  Receipt Date: 20120227
  Transmission Date: 20120608
  Serious: Yes (Hospitalization)
  Sender: FDA-Public Use
  Company Number: US-US-EMD SERONO, INC.-7115547

PATIENT
  Sex: Female
  Weight: 84 kg

DRUGS (4)
  1. REBIF [Suspect]
     Indication: MULTIPLE SCLEROSIS
     Route: 058
     Dates: start: 20110226, end: 20120201
  2. SINEMET [Concomitant]
     Indication: RESTLESS LEGS SYNDROME
  3. LYRICA [Concomitant]
     Indication: PAIN
  4. LORTAB [Concomitant]
     Indication: BACK PAIN

REACTIONS (4)
  - WEIGHT DECREASED [None]
  - INTESTINAL ISCHAEMIA [None]
  - PYREXIA [None]
  - LOCALISED INTRAABDOMINAL FLUID COLLECTION [None]
